FAERS Safety Report 8307071 (Version 2)
Quarter: 2012Q4

REPORT INFORMATION
  Report Type: 
  Country: US (occurrence: US)
  Receive Date: 20111222
  Receipt Date: 20121214
  Transmission Date: 20130627
  Serious: No
  Sender: FDA-Public Use
  Company Number: US-GLAXOSMITHKLINE-A0917553A

PATIENT
  Age: 76 Year
  Sex: Female

DRUGS (11)
  1. FLONASE [Suspect]
     Indication: CHRONIC OBSTRUCTIVE PULMONARY DISEASE
     Dosage: 2SPR Per day
     Route: 045
     Dates: start: 2001, end: 2006
  2. FLUTICASONE PROPIONATE [Suspect]
     Indication: CHRONIC OBSTRUCTIVE PULMONARY DISEASE
     Dosage: 2SPR Per day
     Route: 045
     Dates: start: 2006
  3. VERAMYST [Suspect]
     Indication: MULTIPLE ALLERGIES
     Dosage: 27.5MCG Unknown
     Route: 045
     Dates: start: 20051025
  4. ALLEGRA [Concomitant]
  5. LIPITOR [Concomitant]
  6. ACIPHEX [Concomitant]
  7. FISH OIL [Concomitant]
  8. LISINOPRIL [Concomitant]
  9. BABY ASPIRIN [Concomitant]
  10. MULTIVITAMIN [Concomitant]
  11. VITAMIN [Concomitant]

REACTIONS (5)
  - Rhinalgia [Unknown]
  - Epistaxis [Unknown]
  - Drug ineffective [Unknown]
  - Malaise [Unknown]
  - Aphonia [Unknown]
